FAERS Safety Report 11033021 (Version 1)
Quarter: 2015Q2

REPORT INFORMATION
  Report Type: Spontaneous
  Country: SK (occurrence: SK)
  Receive Date: 20150415
  Receipt Date: 20150415
  Transmission Date: 20150821
  Serious: Yes (Death, Other)
  Sender: FDA-Public Use
  Company Number: SK-MYLANLABS-2015M1012359

PATIENT

DRUGS (1)
  1. ATORVASTATIN [Suspect]
     Active Substance: ATORVASTATIN
     Indication: CEREBRAL INFARCTION
     Route: 065

REACTIONS (4)
  - Acute kidney injury [Unknown]
  - Cardiac failure acute [Fatal]
  - Acute hepatic failure [Unknown]
  - Rhabdomyolysis [Unknown]
